FAERS Safety Report 6724235-8 (Version None)
Quarter: 2010Q2

REPORT INFORMATION
  Report Type: 
  Country: None (occurrence: None)
  Receive Date: 20100513
  Receipt Date: 20100506
  Transmission Date: 20101027
  Serious: Yes (Hospitalization)
  Sender: FDA-Public Use
  Company Number: SE-JNJFOC-20100501933

PATIENT
  Sex: Male

DRUGS (11)
  1. DURAGESIC-100 [Suspect]
     Indication: SMALL CELL LUNG CANCER STAGE UNSPECIFIED
     Route: 062
  2. DURAGESIC-100 [Suspect]
     Route: 062
  3. ALOXI [Concomitant]
     Route: 065
  4. ONDANSETRON [Concomitant]
     Route: 065
  5. ACETAMINOPHEN [Concomitant]
     Route: 065
  6. LAXOBERAL [Concomitant]
     Dosage: ORAL DROPS SOLUTION
     Route: 065
  7. APODORM [Concomitant]
     Route: 048
  8. LAKTULOS [Concomitant]
     Route: 065
  9. ACETYLCYSTEINE [Concomitant]
     Route: 065
  10. NULYTELY [Concomitant]
     Dosage: SACHET
     Route: 065
  11. OXYCODONE HCL [Concomitant]
     Dosage: HARD
     Route: 048

REACTIONS (3)
  - CONFUSIONAL STATE [None]
  - RECURRENT CANCER [None]
  - SMALL CELL LUNG CANCER STAGE UNSPECIFIED [None]
